FAERS Safety Report 8305309-7 (Version None)
Quarter: 2012Q2

REPORT INFORMATION
  Report Type: 
  Country: None (occurrence: None)
  Receive Date: 20120423
  Receipt Date: 20120418
  Transmission Date: 20120825
  Serious: Yes (Other)
  Sender: FDA-Public Use
  Company Number: US-BAYER-2012-038737

PATIENT
  Age: 38 Year
  Sex: Female

DRUGS (1)
  1. MAGNEVIST [Suspect]
     Indication: SCAN
     Dosage: 20 ML, ONCE
     Dates: start: 20110801, end: 20110801

REACTIONS (3)
  - ANAPHYLACTIC REACTION [None]
  - PULMONARY FIBROSIS [None]
  - PULMONARY EMBOLISM [None]
